FAERS Safety Report 8298164-5 (Version None)
Quarter: 2012Q2

REPORT INFORMATION
  Report Type: 
  Country: None (occurrence: None)
  Receive Date: 20120419
  Receipt Date: 20111229
  Transmission Date: 20120825
  Serious: No
  Sender: FDA-Public Use
  Company Number: US-BRISTOL-MYERS SQUIBB COMPANY-16158925

PATIENT
  Age: 70 Year
  Sex: Male

DRUGS (1)
  1. YERVOY [Suspect]
     Dosage: YERVOY INFUSION.
     Dates: start: 20110713

REACTIONS (1)
  - PERIPHERAL SENSORIMOTOR NEUROPATHY [None]
